FAERS Safety Report 9133150 (Version 4)
Quarter: 2013Q2

REPORT INFORMATION
  Report Type: Spontaneous
  Country: JP (occurrence: JP)
  Receive Date: 20130301
  Receipt Date: 20130421
  Transmission Date: 20140414
  Serious: Yes (Disabling, Other)
  Sender: FDA-Public Use
  Company Number: JP-B.I. PHARMACEUTICALS,INC./RIDGEFIELD-2013-BI-05848YA

PATIENT
  Age: 56 Year
  Sex: Male

DRUGS (19)
  1. HARNAL (TAMSULOSIN) ORODISPERSABLE CR [Suspect]
     Dosage: 0.2 MG
     Route: 048
     Dates: start: 20120709
  2. GRACEPTOR [Suspect]
     Indication: RENAL IMPAIRMENT
     Dosage: 4.5 MG
     Route: 048
     Dates: start: 20120918, end: 20130218
  3. GRACEPTOR [Suspect]
     Indication: RENAL TRANSPLANT
     Dosage: 4 MG
     Route: 048
     Dates: start: 20120709, end: 20120917
  4. GRACEPTOR [Suspect]
     Dosage: 4 MG
     Route: 048
     Dates: start: 20130219
  5. GENINAX [Suspect]
     Dosage: 400 MG
     Route: 048
     Dates: start: 20130205, end: 20130212
  6. MUCOSOLVAN L [Suspect]
     Route: 048
     Dates: start: 20130205, end: 20130212
  7. RESPLEN [Suspect]
     Route: 048
     Dates: start: 20130205, end: 20130212
  8. PLETAAL [Suspect]
     Route: 048
     Dates: start: 20120911
  9. CELLCEPT [Suspect]
     Indication: RENAL IMPAIRMENT
     Route: 048
     Dates: start: 20120709
  10. CELLCEPT [Suspect]
     Indication: RENAL TRANSPLANT
  11. VALIXA [Suspect]
     Indication: RENAL IMPAIRMENT
     Route: 048
     Dates: start: 20120911
  12. VALIXA [Suspect]
     Indication: RENAL TRANSPLANT
  13. NOVOLIN R [Suspect]
     Indication: DIABETES MELLITUS
     Route: 058
     Dates: start: 20120918
  14. LEVEMIR [Suspect]
     Indication: DIABETES MELLITUS
     Route: 058
     Dates: start: 20120910
  15. TAKEPRON [Suspect]
     Route: 048
     Dates: start: 20100611
  16. PURSENIDE [Suspect]
     Route: 048
     Dates: start: 20130122, end: 20130219
  17. MEDROL [Suspect]
     Indication: RENAL IMPAIRMENT
     Route: 048
     Dates: start: 20120918
  18. MEDROL [Suspect]
     Indication: RENAL TRANSPLANT
  19. TEARBALANCE [Suspect]
     Indication: DRY EYE
     Dates: start: 20110907

REACTIONS (1)
  - Blood creatinine increased [Unknown]
